FAERS Safety Report 21479365 (Version 1)
Quarter: 2022Q4

REPORT INFORMATION
  Report Type: Spontaneous
  Country: US (occurrence: US)
  Receive Date: 20221019
  Receipt Date: 20221019
  Transmission Date: 20230113
  Serious: No
  Sender: FDA-Public Use
  Company Number: US-AMGEN-USASP2022178958

PATIENT
  Age: 76 Year
  Sex: Female

DRUGS (1)
  1. NEULASTA [Suspect]
     Active Substance: PEGFILGRASTIM
     Indication: Product used for unknown indication
     Dosage: UNK
     Route: 065
     Dates: start: 20221011

REACTIONS (5)
  - Dental discomfort [Unknown]
  - Gingival swelling [Unknown]
  - Headache [Unknown]
  - Pain [Unknown]
  - Discomfort [Unknown]

NARRATIVE: CASE EVENT DATE: 20221001
